FAERS Safety Report 8285669-6 (Version None)
Quarter: 2012Q2

REPORT INFORMATION
  Report Type: 
  Country: None (occurrence: None)
  Receive Date: 20120413
  Receipt Date: 20120320
  Transmission Date: 20120825
  Serious: No
  Sender: FDA-Public Use
  Company Number: US-PFIZER INC-2012077593

PATIENT
  Sex: Female

DRUGS (1)
  1. ZMAX [Suspect]
     Dosage: UNK

REACTIONS (3)
  - DIZZINESS [None]
  - CRYING [None]
  - NERVOUSNESS [None]
